FAERS Safety Report 4869313-3 (Version None)
Quarter: 2005Q4

REPORT INFORMATION
  Report Type: 
  Country: None (occurrence: None)
  Receive Date: 20051227
  Receipt Date: 20051020
  Transmission Date: 20060501
  Serious: Yes (Other)
  Sender: FDA-Public Use
  Company Number: 006#1#2005-00047

PATIENT
  Age: 65 Year
  Sex: Male

DRUGS (5)
  1. EDEX                            CARPOULE (ALPROSTADIL) [Suspect]
     Dosage: 20 MCG (20 MCG/ML 3 IN 1 MONTH INTRACAVERNOUS
     Route: 017
     Dates: start: 19980101, end: 20050101
  2. ACTOS [Concomitant]
  3. AMARYL [Concomitant]
  4. AMLODIPINE BESYLATE [Concomitant]
  5. ENALAPRIL MALEATE AND HYDROCHLOROTHIAZIDE [Concomitant]

REACTIONS (4)
  - ABNORMAL BEHAVIOUR [None]
  - INCOHERENT [None]
  - RETROGRADE AMNESIA [None]
  - UNEVALUABLE EVENT [None]
